FAERS Safety Report 12197532 (Version 7)
Quarter: 2017Q1

REPORT INFORMATION
  Report Type: Spontaneous
  Country: US (occurrence: US)
  Receive Date: 20160322
  Receipt Date: 20170221
  Transmission Date: 20170428
  Serious: Yes (Other)
  Sender: FDA-Public Use
  Company Number: US-PFIZER INC-2016158713

PATIENT
  Age: 71 Year
  Sex: Male
  Weight: 84 kg

DRUGS (4)
  1. SUTENT [Suspect]
     Active Substance: SUNITINIB MALATE
     Indication: RENAL CANCER
     Dosage: 37.5 MG, CYCLIC (D1-D14 Q21D)
     Route: 048
     Dates: start: 20160127, end: 201609
  2. SUTENT [Suspect]
     Active Substance: SUNITINIB MALATE
     Indication: RENAL CELL CARCINOMA
     Dosage: 37.5 MG, CYCLIC (D1-D14 Q21D)
     Route: 048
     Dates: start: 20160114
  3. SUTENT [Suspect]
     Active Substance: SUNITINIB MALATE
     Dosage: UNK
  4. SUTENT [Suspect]
     Active Substance: SUNITINIB MALATE
     Dosage: UNK

REACTIONS (19)
  - Macular degeneration [Unknown]
  - Cellulitis [Unknown]
  - Device related infection [Recovering/Resolving]
  - Dry skin [Unknown]
  - Neuropathy peripheral [Unknown]
  - Erythema [Unknown]
  - Nausea [Unknown]
  - Stomatitis [Recovering/Resolving]
  - Feeling hot [Unknown]
  - Rash [Not Recovered/Not Resolved]
  - Dizziness [Unknown]
  - Abdominal discomfort [Recovered/Resolved]
  - Fatigue [Recovered/Resolved]
  - Dyspepsia [Not Recovered/Not Resolved]
  - Cataract [Unknown]
  - Condition aggravated [Unknown]
  - Skin discolouration [Unknown]
  - Blood pressure increased [Unknown]
  - Abdominal distension [Unknown]

NARRATIVE: CASE EVENT DATE: 20160511
